FAERS Safety Report 6555548-0 (Version None)
Quarter: 2010Q1

REPORT INFORMATION
  Report Type: 
  Country: None (occurrence: None)
  Receive Date: 20100128
  Receipt Date: 20100114
  Transmission Date: 20100710
  Serious: No
  Sender: FDA-Public Use
  Company Number: US-B.I. PHARMACEUTICALS,INC./RIDGEFIELD-2010-BP-00531BP

PATIENT
  Sex: Female

DRUGS (10)
  1. SPIRIVA [Suspect]
     Indication: CHRONIC OBSTRUCTIVE PULMONARY DISEASE
     Dosage: 18 MCG
     Route: 055
     Dates: start: 20071201
  2. VITAMINS [Concomitant]
     Indication: PROPHYLAXIS
  3. ACTIVELLA [Concomitant]
     Indication: MENOPAUSE
  4. ALPRAZOLAM [Concomitant]
     Indication: PANIC ATTACK
  5. ALPRAZOLAM [Concomitant]
     Indication: ANXIETY
  6. PROVENTIL [Concomitant]
     Indication: CHRONIC OBSTRUCTIVE PULMONARY DISEASE
  7. HYDROCHLOROTHIAZIDE [Concomitant]
     Indication: HYPERTENSION
  8. ATENOLOL [Concomitant]
     Indication: HYPERTENSION
  9. RANITIDINE [Concomitant]
     Indication: DYSPEPSIA
  10. RANITIDINE [Concomitant]
     Indication: PEPTIC ULCER

REACTIONS (6)
  - ARTHRALGIA [None]
  - ARTHRITIS [None]
  - CALCINOSIS [None]
  - DIABETES MELLITUS [None]
  - FLATULENCE [None]
  - MYALGIA [None]
